FAERS Safety Report 8984780 (Version 1)
Quarter: 2012Q4

REPORT INFORMATION
  Report Type: Spontaneous
  Country: US (occurrence: None)
  Receive Date: 20121214
  Receipt Date: 20121214
  Transmission Date: 20130627
  Serious: Yes (Hospitalization, Other)
  Sender: FDA-Public Use
  Company Number: 2012P1066606

PATIENT
  Age: 65 Year
  Sex: Male

DRUGS (2)
  1. INFUMORPH [Suspect]
     Indication: PAIN
     Route: 037
  2. INFUMORPH [Suspect]
     Indication: FAILED BACK SURGERY SYNDROME
     Route: 037

REACTIONS (6)
  - Dehydration [None]
  - Renal failure [None]
  - Hypotension [None]
  - Stupor [None]
  - Impaired gastric emptying [None]
  - Confusional state [None]
